FAERS Safety Report 4276452-7 (Version None)
Quarter: 2004Q1

REPORT INFORMATION
  Report Type: 
  Country: None (occurrence: None)
  Receive Date: 20040121
  Receipt Date: 20040121
  Transmission Date: 20041129
  Serious: Yes (Hospitalization, Other)
  Sender: FDA-Public Use
  Company Number: None

PATIENT
  Age: 28 Year
  Sex: Female
  Weight: 120.6568 kg

DRUGS (2)
  1. MERIDIA [Suspect]
     Indication: OBESITY
     Dosage: ONE A DAY
     Dates: start: 20010614, end: 20010713
  2. MERIDIA [Suspect]
     Indication: WEIGHT DECREASED
     Dosage: ONE A DAY
     Dates: start: 20010614, end: 20010713

REACTIONS (6)
  - CHEST PAIN [None]
  - HYPERHIDROSIS [None]
  - INSOMNIA [None]
  - SYNCOPE [None]
  - TACHYCARDIA [None]
  - TREMOR [None]
